FAERS Safety Report 7960639-3 (Version None)
Quarter: 2011Q4

REPORT INFORMATION
  Report Type: 
  Country: None (occurrence: None)
  Receive Date: 20111206
  Receipt Date: 20111202
  Transmission Date: 20120403
  Serious: Yes (Death, Hospitalization)
  Sender: FDA-Public Use
  Company Number: US-ASTRAZENECA-2011SE40808

PATIENT
  Age: 84 Year
  Sex: Male
  Weight: 75.7 kg

DRUGS (11)
  1. LISINOPRIL [Suspect]
     Route: 048
  2. VICOPROFEN [Concomitant]
  3. PEPCID [Concomitant]
  4. METOPROLOL TARTRATE [Concomitant]
  5. PROSCAR [Concomitant]
  6. PLAVIX [Concomitant]
  7. SYMBICORT [Suspect]
     Indication: CHRONIC OBSTRUCTIVE PULMONARY DISEASE
     Dosage: 1 PUFF TWO TIMES A DAY
     Route: 055
  8. DUONEB [Concomitant]
  9. SIMVASTATIN [Concomitant]
  10. TERAZOSYN [Concomitant]
  11. HYDROCHLOROTHIAZIDE [Concomitant]

REACTIONS (17)
  - ARTERIOSCLEROSIS [None]
  - LOWER RESPIRATORY TRACT INFECTION [None]
  - BACK PAIN [None]
  - CARDIAC DISORDER [None]
  - HYPOVOLAEMIA [None]
  - MYOCARDIAL ISCHAEMIA [None]
  - MALAISE [None]
  - AORTIC ANEURYSM [None]
  - DYSPNOEA [None]
  - INFREQUENT BOWEL MOVEMENTS [None]
  - HYPERTENSION [None]
  - MYOCARDIAL INFARCTION [None]
  - CHRONIC OBSTRUCTIVE PULMONARY DISEASE [None]
  - EMPHYSEMA [None]
  - TACHYCARDIA [None]
  - RENAL FAILURE CHRONIC [None]
  - ASTHENIA [None]
